FAERS Safety Report 7831160-8 (Version None)
Quarter: 2011Q4

REPORT INFORMATION
  Report Type: 
  Country: None (occurrence: None)
  Receive Date: 20111021
  Receipt Date: 20111006
  Transmission Date: 20120403
  Serious: Yes (Hospitalization)
  Sender: FDA-Public Use
  Company Number: GB-ROCHE-GNE319808

PATIENT
  Sex: Male
  Weight: 25.4 kg

DRUGS (10)
  1. RYNACROM [Concomitant]
     Indication: RHINITIS
  2. DEFLAZACORT [Concomitant]
     Indication: RHINITIS
  3. CETIRIZINE HCL [Concomitant]
     Indication: RHINITIS
  4. RYNACROM [Concomitant]
     Indication: ASTHMA
     Dosage: UNK
  5. SYMBICORT [Concomitant]
     Indication: ASTHMA
     Dosage: 2 PUFF, BID, DOSE=2 PUFF, DAILY DOSE=4 PUFF
  6. DEFLAZACORT [Concomitant]
     Indication: ASTHMA
     Dosage: 6 MG, QD
  7. SINGULAIR [Concomitant]
     Indication: ASTHMA
     Dosage: 5 MG, QD
  8. XOLAIR [Suspect]
     Indication: ASTHMA
     Dosage: 150 MG, 1/MONTH
     Route: 058
     Dates: start: 20110413
  9. SINGULAIR [Concomitant]
     Indication: RHINITIS
  10. CETIRIZINE HCL [Concomitant]
     Indication: ASTHMA
     Dosage: 10 MG, QD

REACTIONS (5)
  - GASTRITIS [None]
  - CONSTIPATION [None]
  - ABDOMINAL PAIN [None]
  - BACTERIAL INFECTION [None]
  - HELMINTHIC INFECTION [None]
